FAERS Safety Report 6037926-1 (Version None)
Quarter: 2009Q1

REPORT INFORMATION
  Report Type: 
  Country: None (occurrence: None)
  Receive Date: 20090113
  Receipt Date: 20090113
  Transmission Date: 20090719
  Serious: Yes (Life-Threatening)
  Sender: FDA-Public Use
  Company Number: None

PATIENT
  Age: 62 Year
  Sex: Male
  Weight: 95.2554 kg

DRUGS (3)
  1. ERYTHROCIN 500 MG ET [Suspect]
     Indication: PULMONARY CONGESTION
     Dosage: 1 PILL 4 X DAY PO
     Route: 048
     Dates: start: 20090101
  2. ERYTHROCIN 500 MG ET [Suspect]
     Indication: UPPER RESPIRATORY TRACT INFECTION
     Dosage: 1 PILL 4 X DAY PO
     Route: 048
     Dates: start: 20090101
  3. CRESTOR [Suspect]
     Indication: BLOOD CHOLESTEROL INCREASED
     Dosage: 1/2 PILL 1 X DAY PO
     Route: 048

REACTIONS (4)
  - ANURIA [None]
  - MALAISE [None]
  - OEDEMA PERIPHERAL [None]
  - PAIN IN EXTREMITY [None]
